FAERS Safety Report 5271965-3 (Version None)
Quarter: 2007Q1

REPORT INFORMATION
  Report Type: 
  Country: None (occurrence: None)
  Receive Date: 20061219
  Receipt Date: 20060221
  Transmission Date: 20070707
  Serious: Yes (Other)
  Sender: FDA-Public Use
  Company Number: 2373

PATIENT

DRUGS (5)
  1. FLURAZEPAM HYDROCHLORIDE [Suspect]
  2. AMPHETAMINE ASPARTATE MONOHYDRATE [Concomitant]
  3. AMPHETAMINE SULFATE [Concomitant]
  4. DEXTROAMPHETAMINE SACCHARATE [Concomitant]
  5. DEXTROAMPETAMINE SULFATE TAB [Concomitant]

REACTIONS (1)
  - DRUG INEFFECTIVE [None]
